FAERS Safety Report 16630352 (Version 1)
Quarter: 2019Q3

REPORT INFORMATION
  Report Type: Spontaneous
  Country: FR (occurrence: FR)
  Receive Date: 20190725
  Receipt Date: 20190725
  Transmission Date: 20191004
  Serious: Yes (Death, Hospitalization, Other)
  Sender: FDA-Public Use
  Company Number: FR-OTSUKA-2019_026957

PATIENT
  Age: 54 Year
  Sex: Female

DRUGS (2)
  1. ABILIFY [Suspect]
     Active Substance: ARIPIPRAZOLE
     Indication: SCHIZOPHRENIA
     Dosage: 30 MG, QD
     Route: 048
     Dates: end: 20190630
  2. DEPAMIDE [Suspect]
     Active Substance: VALPROMIDE
     Indication: SCHIZOPHRENIA
     Dosage: 300 MG, QD
     Route: 048
     Dates: end: 20190630

REACTIONS (6)
  - Petit mal epilepsy [Unknown]
  - Vomiting [Recovered/Resolved]
  - Septic shock [Fatal]
  - Generalised tonic-clonic seizure [Unknown]
  - Severe acute respiratory syndrome [Unknown]
  - Incorrect dose administered [Unknown]

NARRATIVE: CASE EVENT DATE: 20190630
